FAERS Safety Report 9789339 (Version 2)
Quarter: 2014Q1

REPORT INFORMATION
  Report Type: Report from Study
  Country: US (occurrence: US)
  Receive Date: 20131231
  Receipt Date: 20140129
  Transmission Date: 20141002
  Serious: Yes (Other)
  Sender: FDA-Public Use
  Company Number: US-ROCHE-1326284

PATIENT
  Sex: Female

DRUGS (1)
  1. LUCENTIS [Suspect]
     Indication: PRODUCT USED FOR UNKNOWN INDICATION
     Dosage: FORM:0.5 ML VIAL INJECTION
     Route: 065

REACTIONS (5)
  - Fall [Unknown]
  - Hip surgery [Unknown]
  - Visual impairment [Unknown]
  - Hypoacusis [Unknown]
  - Memory impairment [Unknown]
